FAERS Safety Report 9524463 (Version 1)
Quarter: 2013Q3

REPORT INFORMATION
  Report Type: Spontaneous
  Country: US (occurrence: US)
  Receive Date: 20130916
  Receipt Date: 20130916
  Transmission Date: 20140515
  Serious: No
  Sender: FDA-Public Use
  Company Number: US-PFIZER INC-2013262139

PATIENT
  Age: 75 Year
  Sex: Female

DRUGS (1)
  1. AROMASIN [Suspect]
     Dosage: 25 MG, 1X/DAY (1 TABLET DAILY)
     Dates: start: 20120227

REACTIONS (1)
  - Bone pain [Unknown]
